FAERS Safety Report 6260870-1 (Version None)
Quarter: 2009Q3

REPORT INFORMATION
  Report Type: 
  Country: None (occurrence: None)
  Receive Date: 20090707
  Receipt Date: 20090624
  Transmission Date: 20100115
  Serious: Yes (Life-Threatening, Hospitalization)
  Sender: FDA-Public Use
  Company Number: A-CH2009-25084

PATIENT
  Age: 45 Year
  Sex: Male

DRUGS (14)
  1. TRACLEER [Suspect]
     Indication: PULMONARY HYPERTENSION
     Dosage: 125 MG, BID, ORAL; 31.25 MG, BID, ORAL
     Route: 048
     Dates: start: 20080901, end: 20090320
  2. METHADONE HCL [Suspect]
     Indication: DRUG WITHDRAWAL MAINTENANCE THERAPY
     Dosage: 135 MG, OD, ORAL
     Route: 048
     Dates: start: 20090415
  3. ALDACTONE [Concomitant]
  4. LASIX [Concomitant]
  5. MIDAZOLAM HCL [Concomitant]
  6. PRIMPERAN TAB [Concomitant]
  7. MAGNESIUM SULFATE [Concomitant]
  8. NEXIUM [Concomitant]
  9. SINTROM [Concomitant]
  10. IRON (IRON) [Concomitant]
  11. POTASSIUM CHLORIDE [Concomitant]
  12. BENERVA (THIAMINE HYDROCHLORIDE) [Concomitant]
  13. MAGNESIOCARD (MAGNESIUM ASPARTATE HYDROCHLORIDE) [Concomitant]
  14. IMPORTAL (LACTITOL) [Concomitant]

REACTIONS (9)
  - CARDIO-RESPIRATORY ARREST [None]
  - DRUG INTERACTION [None]
  - DRUG WITHDRAWAL SYNDROME [None]
  - ELECTROCARDIOGRAM QT PROLONGED [None]
  - GENERAL PHYSICAL HEALTH DETERIORATION [None]
  - SEPTIC EMBOLUS [None]
  - THROMBOSIS [None]
  - TORSADE DE POINTES [None]
  - VENTRICULAR TACHYCARDIA [None]
